FAERS Safety Report 8966717 (Version 1)
Quarter: 2012Q4

REPORT INFORMATION
  Report Type: 
  Country: US (occurrence: US)
  Receive Date: 20121217
  Receipt Date: 20121217
  Transmission Date: 20130627
  Serious: Yes (Death, Hospitalization)
  Sender: FDA-Public Use
  Company Number: US-JNJFOC-20121206442

PATIENT
  Age: 70 Year
  Sex: Male
  Weight: 98.88 kg

DRUGS (11)
  1. XARELTO [Suspect]
     Indication: PULMONARY EMBOLISM
     Route: 048
     Dates: end: 20121207
  2. ALTACE [Concomitant]
     Route: 048
  3. MAXZIDE [Concomitant]
     Route: 048
  4. ASPIRIN [Concomitant]
     Route: 048
  5. LIPITOR [Concomitant]
     Route: 048
  6. ZETIA [Concomitant]
     Route: 048
  7. FOLVITE [Concomitant]
     Route: 048
  8. NORCO [Concomitant]
     Route: 048
  9. METOPROLOL TARTRATE [Concomitant]
     Route: 048
  10. THERAGRAN [Concomitant]
     Route: 048
  11. OXYCODONE [Concomitant]
     Route: 048

REACTIONS (1)
  - Embolism [Fatal]
